FAERS Safety Report 7517867-0 (Version None)
Quarter: 2011Q2

REPORT INFORMATION
  Report Type: 
  Country: None (occurrence: None)
  Receive Date: 20110526
  Receipt Date: 20110526
  Transmission Date: 20111010
  Serious: Yes (Life-Threatening)
  Sender: FDA-Public Use
  Company Number: None

PATIENT
  Sex: Female

DRUGS (1)
  1. CLOTRIMAZOLE [Suspect]
     Indication: ORAL CANDIDIASIS
     Dosage: 10 MG DISSOLVE FIVE TIMES DAILY BY MOUTH RX 712636 QUEENS PRICE CHOPPER
     Route: 048
     Dates: start: 20070726, end: 20100301

REACTIONS (3)
  - DISTURBANCE IN SEXUAL AROUSAL [None]
  - SOMNOLENCE [None]
  - PRODUCT SUBSTITUTION ISSUE [None]
